FAERS Safety Report 10188368 (Version 12)
Quarter: 2016Q4

REPORT INFORMATION
  Report Type: Spontaneous
  Country: JP (occurrence: JP)
  Receive Date: 20140522
  Receipt Date: 20161007
  Transmission Date: 20170206
  Serious: Yes (Death, Life-Threatening, Hospitalization, Other)
  Sender: FDA-Public Use
  Company Number: JP-JNJFOC-20140511818

PATIENT
  Age: 40 Year
  Sex: Male
  Weight: 75 kg

DRUGS (8)
  1. REBETOL [Suspect]
     Active Substance: RIBAVIRIN
     Indication: CHRONIC HEPATITIS C
     Route: 048
     Dates: start: 20140307, end: 20140512
  2. PEGINTRON [Suspect]
     Active Substance: PEGINTERFERON ALFA-2B
     Indication: CHRONIC HEPATITIS C
     Route: 058
     Dates: start: 20140307, end: 20140327
  3. ALLELOCK [Concomitant]
     Active Substance: OLOPATADINE HYDROCHLORIDE
     Indication: PRURITUS
     Route: 048
     Dates: start: 20140327, end: 20140510
  4. SOVRIAD [Suspect]
     Active Substance: SIMEPREVIR
     Indication: CHRONIC HEPATITIS C
     Route: 048
     Dates: start: 20140307, end: 20140512
  5. CRESTOR [Concomitant]
     Active Substance: ROSUVASTATIN CALCIUM
     Indication: DYSLIPIDAEMIA
     Route: 048
     Dates: start: 20140203, end: 20140417
  6. MUCOSTA [Concomitant]
     Active Substance: REBAMIPIDE
     Route: 048
  7. PEGINTRON [Suspect]
     Active Substance: PEGINTERFERON ALFA-2B
     Indication: CHRONIC HEPATITIS C
     Route: 058
     Dates: start: 20140403, end: 20140508
  8. LOXONIN [Concomitant]
     Active Substance: LOXOPROFEN SODIUM
     Route: 048

REACTIONS (21)
  - Pancreatitis acute [Not Recovered/Not Resolved]
  - Cellulitis [Unknown]
  - Altered state of consciousness [Unknown]
  - Peritonitis [Fatal]
  - Blood pressure decreased [Unknown]
  - Hyperbilirubinaemia [Not Recovered/Not Resolved]
  - Shock [Unknown]
  - Decreased appetite [Unknown]
  - Hepatitis fulminant [Fatal]
  - Jaundice [Not Recovered/Not Resolved]
  - Renal impairment [Unknown]
  - Acute hepatic failure [Fatal]
  - Hyperthyroidism [Unknown]
  - Disseminated intravascular coagulation [Unknown]
  - Malaise [Unknown]
  - Pruritus [Unknown]
  - Dysphagia [Unknown]
  - Bacterial sepsis [Fatal]
  - Oedema due to hepatic disease [Unknown]
  - Hepatic cirrhosis [Fatal]
  - Aggression [Unknown]

NARRATIVE: CASE EVENT DATE: 20140314
